FAERS Safety Report 8862484 (Version 5)
Quarter: 2013Q1

REPORT INFORMATION
  Report Type: Spontaneous
  Country: US (occurrence: US)
  Receive Date: 20121026
  Receipt Date: 20130109
  Transmission Date: 20140127
  Serious: Yes (Death, Hospitalization, Other)
  Sender: FDA-Public Use
  Company Number: PHEH2012US020775

PATIENT
  Age: 62 Year
  Sex: Female
  Weight: 63.5 kg

DRUGS (7)
  1. GILENYA [Suspect]
     Dosage: 0.5 MG, QD
     Route: 048
     Dates: start: 20110622, end: 20111221
  2. GILENYA [Suspect]
     Dosage: 0.5 MG, QD
     Route: 048
     Dates: start: 20120214, end: 20120316
  3. GILENYA [Suspect]
     Dosage: 0.5 MG, QD
     Route: 048
     Dates: start: 20120405
  4. VERAPAMIL - SLOW RELEASE [Concomitant]
     Indication: MIGRAINE
     Dosage: 120 MG, DAILY
     Route: 048
     Dates: start: 2009
  5. TRAMADOL [Concomitant]
     Indication: PAIN
     Dosage: 50 MG, DAILY
     Route: 048
  6. AMITRIPTYLINE [Concomitant]
     Indication: MIGRAINE PROPHYLAXIS
     Dosage: 10 MG, DAILY
     Route: 048
     Dates: start: 2009
  7. AMBIEN [Concomitant]
     Indication: INSOMNIA
     Dosage: 10 MG, DAILY
     Route: 048
     Dates: start: 2009

REACTIONS (48)
  - Cardio-respiratory arrest [Fatal]
  - Loss of consciousness [Fatal]
  - Coma scale abnormal [Fatal]
  - Hypopnoea [Fatal]
  - Troponin increased [Fatal]
  - Pleural effusion [Fatal]
  - Atelectasis [Fatal]
  - Dyspnoea [Fatal]
  - Cardiogenic shock [Fatal]
  - Multi-organ failure [Fatal]
  - Renal failure acute [Fatal]
  - Hepatic ischaemia [Fatal]
  - Hepatic necrosis [Fatal]
  - Brain injury [Fatal]
  - Hypotension [Fatal]
  - Lactic acidosis [Fatal]
  - Blood bicarbonate decreased [Fatal]
  - Blood pH decreased [Fatal]
  - Metabolic alkalosis [Fatal]
  - Metabolic acidosis [Fatal]
  - Hyperkalaemia [Unknown]
  - Anion gap [Fatal]
  - Mydriasis [Fatal]
  - Hypotonia [Fatal]
  - Oedema peripheral [Fatal]
  - Ascites [Fatal]
  - Coagulopathy [Fatal]
  - Rhabdomyolysis [Fatal]
  - Blood creatine phosphokinase increased [Fatal]
  - Blood creatine phosphokinase MB increased [Fatal]
  - Disseminated intravascular coagulation [Fatal]
  - Cyanosis [Fatal]
  - Intestinal ischaemia [Fatal]
  - Coma [Fatal]
  - Liver function test abnormal [Unknown]
  - Aspartate aminotransferase increased [Unknown]
  - Alanine aminotransferase increased [Unknown]
  - PO2 increased [Unknown]
  - Livedo reticularis [Unknown]
  - Blood creatinine increased [Unknown]
  - Platelet count decreased [Unknown]
  - Abdominal discomfort [Unknown]
  - CD4 lymphocytes decreased [Recovering/Resolving]
  - CD8 lymphocytes decreased [Recovering/Resolving]
  - Oral herpes [Unknown]
  - Onychomycosis [Unknown]
  - Diarrhoea [Unknown]
  - Drug administration error [Unknown]
